FAERS Safety Report 11217298 (Version 1)
Quarter: 2015Q2

REPORT INFORMATION
  Report Type: Spontaneous
  Country: TR (occurrence: TR)
  Receive Date: 20150625
  Receipt Date: 20150625
  Transmission Date: 20150821
  Serious: No
  Sender: FDA-Public Use
  Company Number: TR-MACLEODS PHARMACEUTICALS US LTD-MAC2015001824

PATIENT

DRUGS (2)
  1. NITRIC OXIDE. [Suspect]
     Active Substance: NITRIC OXIDE
     Indication: PRODUCT USED FOR UNKNOWN INDICATION
     Dosage: 15?40?PPM/DOSE
  2. SILDENAFIL TABLETS [Suspect]
     Active Substance: SILDENAFIL
     Indication: PULMONARY HYPERTENSION
     Dosage: 1MG/KG/DOSE
     Route: 048

REACTIONS (2)
  - Drug ineffective [Fatal]
  - Death neonatal [None]
